FAERS Safety Report 9744922 (Version 2)
Quarter: 2013Q4

REPORT INFORMATION
  Report Type: Spontaneous
  Country: US (occurrence: US)
  Receive Date: 20131211
  Receipt Date: 20131223
  Transmission Date: 20140711
  Serious: Yes (Hospitalization, Other)
  Sender: FDA-Public Use
  Company Number: US-BIOGENIDEC-2013BI118345

PATIENT
  Age: 79 Year
  Sex: Female

DRUGS (3)
  1. AVONEX [Suspect]
     Indication: MULTIPLE SCLEROSIS
     Route: 030
  2. AVONEX [Suspect]
     Indication: MULTIPLE SCLEROSIS
     Route: 030
     Dates: start: 20020304
  3. AVONEX [Suspect]
     Indication: MULTIPLE SCLEROSIS
     Route: 030
     Dates: start: 20131125

REACTIONS (12)
  - Atrial fibrillation [Recovered/Resolved]
  - Pulmonary hypertension [Unknown]
  - Mitral valve incompetence [Unknown]
  - Chronic obstructive pulmonary disease [Unknown]
  - Cough [Unknown]
  - Dyspnoea [Unknown]
  - Urinary tract infection [Unknown]
  - Left ventricular failure [Unknown]
  - Cardiac failure congestive [Unknown]
  - Headache [Unknown]
  - Memory impairment [Unknown]
  - Pneumonia [Recovered/Resolved]
